FAERS Safety Report 15890594 (Version 2)
Quarter: 2019Q1

REPORT INFORMATION
  Report Type: Spontaneous
  Country: CO (occurrence: CO)
  Receive Date: 20190130
  Receipt Date: 20190322
  Transmission Date: 20190417
  Serious: Yes (Death, Hospitalization, Other)
  Sender: FDA-Public Use
  Company Number: CO-PFIZER INC-2019043401

PATIENT
  Age: 57 Year
  Sex: Female

DRUGS (1)
  1. REAMPLA [Suspect]
     Active Substance: PALBOCICLIB
     Indication: BREAST CANCER METASTATIC
     Dosage: 125 MG, UNK
     Route: 048

REACTIONS (5)
  - Joint swelling [Unknown]
  - Bone pain [Unknown]
  - Arthralgia [Unknown]
  - Death [Fatal]
  - Bone swelling [Unknown]

NARRATIVE: CASE EVENT DATE: 20190306
